FAERS Safety Report 7577964-0 (Version None)
Quarter: 2011Q2

REPORT INFORMATION
  Report Type: 
  Country: None (occurrence: None)
  Receive Date: 20110628
  Receipt Date: 20110621
  Transmission Date: 20111010
  Serious: Yes (Other)
  Sender: FDA-Public Use
  Company Number: US-PFIZER INC-2011137481

PATIENT
  Age: 67 Year
  Sex: Female
  Weight: 47.6 kg

DRUGS (1)
  1. LIPITOR [Suspect]
     Indication: BLOOD CHOLESTEROL INCREASED
     Dosage: 10 MG, 1X/DAY
     Route: 048
     Dates: start: 20110601

REACTIONS (5)
  - SOMNOLENCE [None]
  - PAIN [None]
  - ARTHROPATHY [None]
  - PNEUMONIA [None]
  - PAIN IN EXTREMITY [None]
